FAERS Safety Report 15203011 (Version 3)
Quarter: 2019Q4

REPORT INFORMATION
  Report Type: Report from Study
  Country: US (occurrence: US)
  Receive Date: 20180726
  Receipt Date: 20191008
  Transmission Date: 20200122
  Serious: Yes (Other)
  Sender: FDA-Public Use
  Company Number: US-ARIAD-2015US005129

PATIENT
  Sex: Male

DRUGS (5)
  1. PONATINIB [Suspect]
     Active Substance: PONATINIB
     Indication: CHRONIC MYELOID LEUKAEMIA
     Dosage: 30 MILLIGRAM, QD
     Route: 048
     Dates: start: 201302
  2. HYDROCHLOROTHIAZIDE. [Concomitant]
     Active Substance: HYDROCHLOROTHIAZIDE
     Dosage: 12.5 MILLIGRAM, QD
     Route: 048
  3. AMLODIPINE [Concomitant]
     Active Substance: AMLODIPINE BESYLATE
     Dosage: 5 MILLIGRAM, QD
     Route: 048
  4. ASPIRIN ACTAVIS [Concomitant]
     Dosage: 81 MILLIGRAM, QD
     Route: 048
  5. PONATINIB [Suspect]
     Active Substance: PONATINIB
     Dosage: 30 MILLIGRAM, QD
     Route: 048
     Dates: start: 20140127

REACTIONS (21)
  - Limb injury [Unknown]
  - Feeling abnormal [Unknown]
  - Oedema peripheral [Unknown]
  - Erectile dysfunction [Unknown]
  - Dizziness [Unknown]
  - Headache [Unknown]
  - Hypoaesthesia [Unknown]
  - Syncope [Unknown]
  - Head injury [Unknown]
  - Fall [Unknown]
  - Blood urea increased [Unknown]
  - Skin discolouration [Unknown]
  - Foot fracture [Unknown]
  - Cardiovascular disorder [Unknown]
  - Nausea [Unknown]
  - Blood pressure increased [Unknown]
  - Hypertension [Unknown]
  - Skin hypertrophy [Unknown]
  - Drug ineffective [Unknown]
  - Abdominal pain [Unknown]
  - Aspartate aminotransferase increased [Unknown]
